FAERS Safety Report 12204516 (Version 1)
Quarter: 2016Q1

REPORT INFORMATION
  Report Type: Spontaneous
  Country: US (occurrence: None)
  Receive Date: 20160322
  Receipt Date: 20160322
  Transmission Date: 20160526
  Serious: Yes (Hospitalization)
  Sender: FDA-Public Use
  Company Number: None

PATIENT
  Age: 61 Year
  Sex: Male

DRUGS (2)
  1. MORPHINE SULFATE EXTENDED-RELEASE [Suspect]
     Active Substance: MORPHINE SULFATE
  2. MORPHINE IR 30 MG [Suspect]
     Active Substance: MORPHINE SULFATE

REACTIONS (2)
  - Depressed level of consciousness [None]
  - Unevaluable event [None]

NARRATIVE: CASE EVENT DATE: 20150416
